FAERS Safety Report 12137594 (Version 1)
Quarter: 2016Q1

REPORT INFORMATION
  Report Type: Spontaneous
  Country: US (occurrence: US)
  Receive Date: 20160302
  Receipt Date: 20160302
  Transmission Date: 20160526
  Serious: No
  Sender: FDA-Public Use
  Company Number: US-ACTAVIS-2015-11363

PATIENT
  Age: 61 Year
  Sex: Male

DRUGS (1)
  1. LORATADINE/PSEUDOEPHEDRINE SULFATE (ACTAVIS LABORATORIES FL ) [Suspect]
     Active Substance: LORATADINE\PSEUDOEPHEDRINE SULFATE
     Indication: NASAL CONGESTION
     Dosage: 1 DF, DAILY
     Route: 048
     Dates: start: 20150526, end: 20150527

REACTIONS (2)
  - Drug ineffective [Unknown]
  - Expired product administered [Unknown]

NARRATIVE: CASE EVENT DATE: 20150526
